FAERS Safety Report 23771244 (Version 2)
Quarter: 2024Q2

REPORT INFORMATION
  Report Type: Report from Study
  Country: US (occurrence: US)
  Receive Date: 20240423
  Receipt Date: 20240609
  Transmission Date: 20240716
  Serious: No
  Sender: FDA-Public Use
  Company Number: US-AstraZeneca-CH-00605209A

PATIENT
  Age: 34 Year
  Sex: Female

DRUGS (1)
  1. STRENSIQ [Suspect]
     Active Substance: ASFOTASE ALFA
     Indication: Product used for unknown indication
     Dosage: UNK
     Route: 065

REACTIONS (6)
  - Therapy non-responder [Unknown]
  - Fatigue [Unknown]
  - Arthralgia [Unknown]
  - Fear of injection [Unknown]
  - Injection site erythema [Unknown]
  - Headache [Unknown]

NARRATIVE: CASE EVENT DATE: 20240416
